FAERS Safety Report 8430369-2 (Version None)
Quarter: 2012Q2

REPORT INFORMATION
  Report Type: 
  Country: None (occurrence: None)
  Receive Date: 20120323
  Receipt Date: 20110930
  Transmission Date: 20120825
  Serious: Yes (Other)
  Sender: FDA-Public Use
  Company Number: 163-21880-11073055

PATIENT
  Age: 77 Year
  Sex: Male

DRUGS (3)
  1. VELCADE [Concomitant]
  2. REVLIMID [Suspect]
     Indication: MULTIPLE MYELOMA
     Dosage: 25;15MG, DAILY DAYS 1-21, PO
     Route: 048
     Dates: start: 20110523, end: 20110101
  3. REVLIMID [Suspect]
     Indication: MULTIPLE MYELOMA
     Dosage: 25;15MG, DAILY DAYS 1-21, PO
     Route: 048
     Dates: start: 20110701

REACTIONS (1)
  - PANCYTOPENIA [None]
